FAERS Safety Report 19405172 (Version 1)
Quarter: 2021Q2

REPORT INFORMATION
  Report Type: Spontaneous
  Country: US (occurrence: US)
  Receive Date: 20210611
  Receipt Date: 20210611
  Transmission Date: 20210717
  Serious: Yes (Death)
  Sender: FDA-Public Use
  Company Number: None

PATIENT
  Age: 48 Year
  Sex: Male

DRUGS (14)
  1. PROCHLORPERAZINE. [Concomitant]
     Active Substance: PROCHLORPERAZINE
     Dates: start: 20210428
  2. ZARXIO [Concomitant]
     Active Substance: FILGRASTIM-SNDZ
     Dates: start: 20200924
  3. LIDO/PRILOCANE [Concomitant]
     Dates: start: 20210416
  4. ONDANSETRON [Concomitant]
     Active Substance: ONDANSETRON
     Dates: start: 20201223
  5. OXYCODONE AND ACETAMINOPHEN [Concomitant]
     Active Substance: ACETAMINOPHEN\OXYCODONE HYDROCHLORIDE
     Dates: start: 20200712
  6. OXYCODONE [Concomitant]
     Active Substance: OXYCODONE
     Dates: start: 20200728
  7. XARELTO [Concomitant]
     Active Substance: RIVAROXABAN
     Dates: start: 20200826
  8. CAPECITABINE. [Suspect]
     Active Substance: CAPECITABINE
     Indication: CHOLANGIOCARCINOMA
     Route: 048
     Dates: start: 20200924
  9. SERTRALINE [Concomitant]
     Active Substance: SERTRALINE HYDROCHLORIDE
     Dates: start: 20210420
  10. CAPECITABINE. [Concomitant]
     Active Substance: CAPECITABINE
     Dates: start: 20200924
  11. ALLOPURINOL. [Concomitant]
     Active Substance: ALLOPURINOL
     Dates: start: 20200916
  12. ZARXIO [Suspect]
     Active Substance: FILGRASTIM-SNDZ
     Indication: CHOLANGIOCARCINOMA
     Route: 058
     Dates: start: 20200924
  13. LORAZEPAM. [Concomitant]
     Active Substance: LORAZEPAM
     Dates: start: 20200819
  14. OMEPRAZOLE. [Concomitant]
     Active Substance: OMEPRAZOLE
     Dates: start: 20210323

REACTIONS (1)
  - Death [None]

NARRATIVE: CASE EVENT DATE: 20210529
